FAERS Safety Report 8173404-1 (Version None)
Quarter: 2012Q1

REPORT INFORMATION
  Report Type: 
  Country: None (occurrence: None)
  Receive Date: 20120229
  Receipt Date: 20120224
  Transmission Date: 20120608
  Serious: Yes (Hospitalization)
  Sender: FDA-Public Use
  Company Number: FR-ROXANE LABORATORIES, INC.-2012-RO-00729RO

PATIENT
  Age: 49 Year
  Sex: Female

DRUGS (5)
  1. RITUXIMAB [Suspect]
  2. AZATHIOPRINE [Suspect]
     Dosage: 150 MG
  3. AZATHIOPRINE [Suspect]
     Dosage: 100 MG
  4. PREDNISONE [Suspect]
     Indication: RHEUMATOID ARTHRITIS
  5. PREDNISONE [Suspect]
     Indication: ACQUIRED HAEMOPHILIA

REACTIONS (1)
  - BONE MARROW FAILURE [None]
